APPROVED DRUG PRODUCT: DIGOXIN
Active Ingredient: DIGOXIN
Strength: 0.125MG
Dosage Form/Route: TABLET;ORAL
Application: A076363 | Product #001 | TE Code: AB
Applicant: SUN PHARMACEUTICAL INDUSTRIES INC
Approved: Jan 31, 2003 | RLD: No | RS: No | Type: RX